FAERS Safety Report 5614050-0 (Version None)
Quarter: 2008Q1

REPORT INFORMATION
  Report Type: 
  Country: None (occurrence: None)
  Receive Date: 20080205
  Receipt Date: 20080128
  Transmission Date: 20080703
  Serious: Yes (Hospitalization)
  Sender: FDA-Public Use
  Company Number: FR-ROCHE-536677

PATIENT
  Age: 29 Year
  Sex: Male

DRUGS (10)
  1. CLONAZEPAM [Suspect]
     Indication: EPILEPSY
     Dosage: FORM REPORTED: INJECTABLE SOLUTION, DOSAGE REGIMEN: 1/2 DOSE IN MORNING, 1/2 DOSE AT LUNCH TIME+
     Route: 048
     Dates: start: 20050101, end: 20071024
  2. LEPONEX [Suspect]
     Route: 048
     Dates: start: 20040806
  3. LEPONEX [Suspect]
     Dosage: PROGRESSIVE INCREASE UP TO 400 MG DAILY
     Route: 048
     Dates: start: 20050101, end: 20070301
  4. LEPONEX [Suspect]
     Route: 048
     Dates: start: 20070423
  5. LEPONEX [Suspect]
     Route: 048
     Dates: start: 20070523, end: 20071008
  6. ANDROCUR [Suspect]
     Indication: DRUG USE FOR UNKNOWN INDICATION
     Route: 048
     Dates: start: 20050101, end: 20071024
  7. DEPAMIDE [Suspect]
     Route: 048
     Dates: start: 20050101, end: 20071024
  8. TAMSULOSIN HCL [Concomitant]
     Dosage: DRUG NAME REPORTED: OMIX LP
  9. SEGLOR [Concomitant]
  10. MESTINON [Concomitant]

REACTIONS (1)
  - CYTOLYTIC HEPATITIS [None]
